FAERS Safety Report 4674416-2 (Version None)
Quarter: 2005Q2

REPORT INFORMATION
  Report Type: 
  Country: None (occurrence: None)
  Receive Date: 20050526
  Receipt Date: 20040519
  Transmission Date: 20051028
  Serious: Yes (Other)
  Sender: FDA-Public Use
  Company Number: PHEH2004US05587

PATIENT
  Age: 78 Year
  Sex: Female

DRUGS (7)
  1. ZOMETA [Suspect]
     Indication: MULTIPLE MYELOMA
     Dosage: UNK,UNK
  2. VELCADE [Concomitant]
     Dates: start: 20040517
  3. MEPIVACAINE HCL [Concomitant]
  4. LIDOCAIN ^EGIS^ [Concomitant]
  5. SEPTACAINE [Concomitant]
  6. AMOXICILLIN [Concomitant]
  7. CHEMOTHERAPEUTICS,OTHER [Concomitant]

REACTIONS (9)
  - BONE DISORDER [None]
  - DYSGEUSIA [None]
  - FACE AND MOUTH X-RAY ABNORMAL [None]
  - GINGIVAL BLEEDING [None]
  - IMPAIRED HEALING [None]
  - LYMPHADENITIS [None]
  - OSTEONECROSIS [None]
  - PAIN [None]
  - TOOTH EXTRACTION [None]
